FAERS Safety Report 14538122 (Version 1)
Quarter: 2018Q1

REPORT INFORMATION
  Report Type: Spontaneous
  Country: US (occurrence: US)
  Receive Date: 20180216
  Receipt Date: 20180216
  Transmission Date: 20180509
  Serious: No
  Sender: FDA-Public Use
  Company Number: US-TEVA-2018-US-852149

PATIENT
  Sex: Male

DRUGS (2)
  1. FENTANYL TRANSDERMAL SYSTEM [Suspect]
     Active Substance: FENTANYL
     Indication: PAIN
     Route: 062
  2. FENTANYL TRANSDERMAL SYSTEM [Suspect]
     Active Substance: FENTANYL
     Route: 062

REACTIONS (6)
  - Incorrect dose administered [Unknown]
  - Hyperhidrosis [Unknown]
  - Drug ineffective for unapproved indication [Unknown]
  - Tremor [Unknown]
  - Poor quality sleep [Unknown]
  - Product use in unapproved indication [Unknown]
